FAERS Safety Report 6903448-6 (Version None)
Quarter: 2010Q3

REPORT INFORMATION
  Report Type: 
  Country: None (occurrence: None)
  Receive Date: 20100803
  Receipt Date: 20081001
  Transmission Date: 20110219
  Serious: No
  Sender: FDA-Public Use
  Company Number: US-PFIZER INC-2008083084

PATIENT
  Sex: Female
  Weight: 68.2 kg

DRUGS (5)
  1. LYRICA [Suspect]
     Indication: FIBROMYALGIA
     Dates: start: 20080701
  2. LYRICA [Suspect]
     Indication: NEURALGIA
  3. ORAL CONTRACEPTIVE NOS [Concomitant]
  4. ALPRAZOLAM [Concomitant]
  5. VICODIN [Concomitant]

REACTIONS (9)
  - ABDOMINAL DISCOMFORT [None]
  - ABDOMINAL PAIN UPPER [None]
  - DIARRHOEA [None]
  - DRUG INEFFECTIVE [None]
  - DRY EYE [None]
  - FATIGUE [None]
  - GASTROINTESTINAL DISORDER [None]
  - SOMNOLENCE [None]
  - VISION BLURRED [None]
